FAERS Safety Report 4811761-1 (Version None)
Quarter: 2005Q4

REPORT INFORMATION
  Report Type: 
  Country: None (occurrence: None)
  Receive Date: 20051028
  Receipt Date: 20051019
  Transmission Date: 20060501
  Serious: Yes (Hospitalization)
  Sender: FDA-Public Use
  Company Number: PH-BOEHRINGER INGELHEIM PHARMACEUTICALS, INC.-2005-BP-18692RP

PATIENT

DRUGS (1)
  1. ATROVENT [Suspect]
     Indication: ASTHMA
     Route: 055

REACTIONS (4)
  - DRUG HYPERSENSITIVITY [None]
  - MEDICATION ERROR [None]
  - PNEUMONIA [None]
  - RESPIRATORY FAILURE [None]
